FAERS Safety Report 10234858 (Version 1)
Quarter: 2014Q2

REPORT INFORMATION
  Report Type: Spontaneous
  Country: US (occurrence: None)
  Receive Date: 20140516
  Receipt Date: 20140516
  Transmission Date: 20141212
  Serious: No
  Sender: FDA-Public Use
  Company Number: E2007-01635-SPO-US

PATIENT
  Sex: Female

DRUGS (1)
  1. FYCOMPA (PERAMPANEL) [Suspect]
     Route: 048

REACTIONS (1)
  - Sedation [None]
